FAERS Safety Report 7155771-0 (Version None)
Quarter: 2010Q4

REPORT INFORMATION
  Report Type: 
  Country: None (occurrence: None)
  Receive Date: 20101214
  Receipt Date: 20101206
  Transmission Date: 20110411
  Serious: Yes (Other)
  Sender: FDA-Public Use
  Company Number: US-US-EMD SERONO, INC.-7030987

PATIENT
  Sex: Male

DRUGS (2)
  1. REBIF [Suspect]
     Indication: MULTIPLE SCLEROSIS
     Dates: start: 20090129
  2. NITROGLYCERIN [Concomitant]
     Indication: HYPERTENSION

REACTIONS (7)
  - CAROTID ARTERY OCCLUSION [None]
  - CENTRAL NERVOUS SYSTEM LESION [None]
  - DYSGRAPHIA [None]
  - GAIT DISTURBANCE [None]
  - HYPOAESTHESIA [None]
  - SPEECH DISORDER [None]
  - TRANSIENT ISCHAEMIC ATTACK [None]
